FAERS Safety Report 9012201 (Version 1)
Quarter: 2013Q1

REPORT INFORMATION
  Report Type: Spontaneous
  Country: BR (occurrence: BR)
  Receive Date: 20130114
  Receipt Date: 20130114
  Transmission Date: 20140127
  Serious: Yes (Hospitalization, Other)
  Sender: FDA-Public Use
  Company Number: BR-PFIZER INC-2013014351

PATIENT
  Age: 45 Year
  Sex: Female

DRUGS (3)
  1. LYRICA [Suspect]
     Indication: BACK PAIN
     Dosage: 75 MG (ONE CAPSULE), 1X/DAY
     Route: 048
     Dates: start: 201001, end: 201001
  2. LYRICA [Suspect]
     Dosage: 150 MG (ONE CAPSULE), 3X/DAY
     Route: 048
     Dates: start: 201001, end: 201212
  3. EFEXOR XR [Concomitant]
     Indication: PAIN
     Dosage: ONE CAPSULE OF 37.5MG DAILY AND ONE CAPSULE OF 75MG DAILY
     Dates: start: 20120310

REACTIONS (6)
  - Malaise [Unknown]
  - Tremor [Unknown]
  - Nausea [Unknown]
  - Feeling abnormal [Recovering/Resolving]
  - Spinal disorder [Unknown]
  - Headache [Unknown]
